FAERS Safety Report 18966775 (Version 4)
Quarter: 2021Q3

REPORT INFORMATION
  Report Type: Spontaneous
  Country: JP (occurrence: JP)
  Receive Date: 20210303
  Receipt Date: 20210813
  Transmission Date: 20211014
  Serious: Yes (Death, Hospitalization, Disabling, Other)
  Sender: FDA-Public Use
  Company Number: JP-009507513-2102JPN002589J

PATIENT
  Age: 81 Year
  Sex: Male
  Weight: 48 kg

DRUGS (10)
  1. NATRIX [Concomitant]
     Active Substance: INDAPAMIDE
     Dosage: 1 MG, ONCE/DAY, POSTPRANDIALLY (IN THE MORNING)
     Route: 048
  2. BROTIZOLAM [Concomitant]
     Active Substance: BROTIZOLAM
     Dosage: 0.25 MG, ONCE/DAY, BEFORE BEDTIME
     Route: 048
  3. ETIZOLAM [Concomitant]
     Active Substance: ETIZOLAM
     Dosage: 1 MG, ONCE/DAY, BEFORE BEDTIME
     Route: 048
  4. UNISIA [Concomitant]
     Active Substance: AMLODIPINE BESYLATE\CANDESARTAN CILEXETIL
     Dosage: 1 DF (DOSAGE FORM), ONCE/DAY, POSTPRANDIALLY (IN THE MORNING)
     Route: 048
  5. TAKECAB [Concomitant]
     Active Substance: VONOPRAZAN FUMARATE
     Dosage: 10 MG, ONCE/DAY, BEFORE BEDTIME
     Route: 048
  6. DOGMATYL [Concomitant]
     Active Substance: SULPIRIDE
     Dosage: 50 MG, 3 TIMES/DAY, POSTPRANDIALLY (IN THE MORNING, NOON AND EVENING)
     Route: 048
  7. SENNOSIDE A+B [Concomitant]
     Active Substance: SENNOSIDES A AND B
     Dosage: 36 MG, ONCE/DAY, BEFORE BEDTIME
     Route: 048
  8. KEYTRUDA [Suspect]
     Active Substance: PEMBROLIZUMAB
     Indication: LUNG SQUAMOUS CELL CARCINOMA STAGE II
     Dosage: 400 MILLIGRAM, EVERY 6 WEEKS
     Route: 041
     Dates: start: 20201124, end: 20210104
  9. VOLTMIE [Concomitant]
     Active Substance: LIPASE\PROTEASE
     Dosage: 1 DF (DOSAGE FORM), 3 TIMES/DAY, POSTPRANDIALLY (IN THE MORNING, NOON AND EVENING)
     Route: 048
  10. MAGMITT [Concomitant]
     Active Substance: MAGNESIUM OXIDE
     Dosage: 330 MG, 3 TIMES/DAY, POSTPRANDIALLY (IN THE MORNING, NOON AND EVENING)
     Route: 048

REACTIONS (4)
  - Immune-mediated enterocolitis [Recovered/Resolved]
  - Malignant neoplasm progression [Fatal]
  - Electrolyte imbalance [Not Recovered/Not Resolved]
  - Sepsis [Fatal]

NARRATIVE: CASE EVENT DATE: 2021
